FAERS Safety Report 6647113-1 (Version None)
Quarter: 2010Q1

REPORT INFORMATION
  Report Type: 
  Country: None (occurrence: None)
  Receive Date: 20100323
  Receipt Date: 20100311
  Transmission Date: 20100710
  Serious: Yes (Other)
  Sender: FDA-Public Use
  Company Number: PHEH2010US03086

PATIENT
  Sex: Female

DRUGS (9)
  1. RECLAST [Suspect]
  2. ACIPHEX [Concomitant]
  3. BABY ASPIRIN [Concomitant]
  4. DILTIAZEM HCL [Concomitant]
  5. LIPITOR [Concomitant]
  6. TAMOXIFEN CITRATE [Concomitant]
  7. CALCIUM WITH VITAMIN D [Concomitant]
  8. CITRACAL [Concomitant]
  9. ONE A DAY                          /02262701/ [Concomitant]

REACTIONS (6)
  - DRUG INEFFECTIVE [None]
  - FEMUR FRACTURE [None]
  - NERVE COMPRESSION [None]
  - PAIN [None]
  - SPINAL FRACTURE [None]
  - WALKING AID USER [None]
